FAERS Safety Report 5522929-3 (Version None)
Quarter: 2007Q4

REPORT INFORMATION
  Report Type: 
  Country: None (occurrence: None)
  Receive Date: 20071116
  Receipt Date: 20071108
  Transmission Date: 20080405
  Serious: Yes (Other)
  Sender: FDA-Public Use
  Company Number: 230124J07USA

PATIENT
  Age: 27 Year
  Sex: Female

DRUGS (10)
  1. REBIF [Suspect]
     Indication: MULTIPLE SCLEROSIS
     Dosage: 44 MCG, 3 IN 1 WEEKS, SUBCUTANEOUS
     Route: 058
     Dates: start: 20070402, end: 20071103
  2. PREVACID [Concomitant]
  3. CYCLOBENZAPRINE [Concomitant]
  4. MIRAPEX [Concomitant]
  5. TRAZODONE HCL [Concomitant]
  6. TOPAMAX [Concomitant]
  7. IMITREX [Concomitant]
  8. KLONOPIN [Concomitant]
  9. SENOKOT (SENNA ALEXANDRINA) [Concomitant]
  10. LEVOTHYROXINE (LEVOTHYROXINE /00068001/) [Concomitant]

REACTIONS (1)
  - THYROID CANCER [None]
